FAERS Safety Report 13554567 (Version 1)
Quarter: 2017Q2

REPORT INFORMATION
  Report Type: Spontaneous
  Country: US (occurrence: US)
  Receive Date: 20170516
  Receipt Date: 20170516
  Transmission Date: 20170830
  Serious: Yes (Other)
  Sender: FDA-Public Use
  Company Number: None

PATIENT
  Age: 79 Year
  Sex: Male
  Weight: 27.9 kg

DRUGS (3)
  1. AMIOCARDONE [Concomitant]
  2. METFORMIN HCL TABS 500MG [Suspect]
     Active Substance: METFORMIN HYDROCHLORIDE
     Indication: TYPE 2 DIABETES MELLITUS
     Dosage: ?          QUANTITY:2 TABLET(S);?
     Route: 048
     Dates: start: 20170101, end: 20170515
  3. VALSARTAN. [Concomitant]
     Active Substance: VALSARTAN

REACTIONS (6)
  - Product substitution issue [None]
  - Abdominal pain upper [None]
  - Drug ineffective [None]
  - Product taste abnormal [None]
  - Product formulation issue [None]
  - Blood glucose increased [None]

NARRATIVE: CASE EVENT DATE: 20170501
